FAERS Safety Report 19482802 (Version 2)
Quarter: 2021Q3

REPORT INFORMATION
  Report Type: Report from Study
  Country: GB (occurrence: GB)
  Receive Date: 20210701
  Receipt Date: 20210927
  Transmission Date: 20211014
  Serious: Yes (Hospitalization)
  Sender: FDA-Public Use
  Company Number: GB-ROCHE-2855276

PATIENT
  Sex: Female
  Weight: 78.6 kg

DRUGS (1)
  1. ALECTINIB. [Suspect]
     Active Substance: ALECTINIB
     Indication: NON-SMALL CELL LUNG CANCER
     Dosage: DATE OF LAST DOSE PRIOR TO AE ONSET: 19/JUN/2021
     Route: 048
     Dates: start: 20171207, end: 20210619

REACTIONS (1)
  - Bacterial infection [Recovering/Resolving]
